FAERS Safety Report 19475413 (Version 1)
Quarter: 2021Q2

REPORT INFORMATION
  Report Type: Spontaneous
  Country: CA (occurrence: CA)
  Receive Date: 20210630
  Receipt Date: 20210630
  Transmission Date: 20210717
  Serious: Yes (Other)
  Sender: FDA-Public Use
  Company Number: CA-COVIS PHARMA GMBH-2021COV23055

PATIENT
  Sex: Female
  Weight: 52.3 kg

DRUGS (11)
  1. PULMICORT TURBUHALER [Suspect]
     Active Substance: BUDESONIDE
     Dosage: DOSE UNKNOWN TWO TIMES A DAY
     Route: 055
     Dates: start: 2014
  2. AVAMYS [Suspect]
     Active Substance: FLUTICASONE FUROATE
     Indication: PRODUCT USED FOR UNKNOWN INDICATION
     Dosage: 27.5
     Route: 065
     Dates: start: 2019
  3. RESLIZUMAB [Suspect]
     Active Substance: RESLIZUMAB
     Indication: PRODUCT USED FOR UNKNOWN INDICATION
     Dosage: UNKNOWN
     Route: 065
  4. ALVESCO [Suspect]
     Active Substance: CICLESONIDE
     Indication: ASTHMA
     Dosage: 200 MG
     Route: 055
     Dates: start: 2014
  5. SALBUTAMOL SULFATE [Suspect]
     Active Substance: ALBUTEROL SULFATE
     Indication: PRODUCT USED FOR UNKNOWN INDICATION
     Dosage: 100 MCG AS NEEDED.
     Route: 065
     Dates: start: 2013
  6. MOMETASONE [Suspect]
     Active Substance: MOMETASONE
     Indication: PRODUCT USED FOR UNKNOWN INDICATION
     Dosage: 50MG
     Route: 065
  7. PULMICORT TURBUHALER [Suspect]
     Active Substance: BUDESONIDE
     Indication: PRODUCT USED FOR UNKNOWN INDICATION
     Dosage: DOSE UNKNOWN TWO TIMES A DAY
     Route: 055
     Dates: start: 2014
  8. ADVAIR HFA [Suspect]
     Active Substance: FLUTICASONE PROPIONATE\SALMETEROL XINAFOATE
     Indication: PRODUCT USED FOR UNKNOWN INDICATION
     Dosage: 250/25 MCG
     Route: 065
     Dates: start: 2013
  9. OMALIZUMAB. [Suspect]
     Active Substance: OMALIZUMAB
     Indication: PRODUCT USED FOR UNKNOWN INDICATION
     Dosage: UNKNOWN
     Route: 065
  10. SINGULAIR [Suspect]
     Active Substance: MONTELUKAST SODIUM
     Indication: ASTHMA
     Dosage: 10 MG
     Route: 065
     Dates: start: 2019
  11. NUCALA [Suspect]
     Active Substance: MEPOLIZUMAB
     Indication: ASTHMA
     Dosage: 100 MG MOTHLY
     Route: 058
     Dates: start: 20200323

REACTIONS (17)
  - Dyspnoea [Unknown]
  - Dyspnoea exertional [Unknown]
  - Cough [Unknown]
  - Frustration tolerance decreased [Unknown]
  - Nasal congestion [Recovering/Resolving]
  - Wheezing [Unknown]
  - Glaucoma [Unknown]
  - Sleep disorder due to a general medical condition [Unknown]
  - Chronic spontaneous urticaria [Unknown]
  - Upper respiratory tract infection [Recovering/Resolving]
  - Sinus congestion [Recovering/Resolving]
  - Upper-airway cough syndrome [Unknown]
  - Chest discomfort [Unknown]
  - Asthma [Unknown]
  - Loss of personal independence in daily activities [Unknown]
  - Sneezing [Unknown]
  - Therapeutic product effect incomplete [Unknown]
